FAERS Safety Report 5207345-6 (Version None)
Quarter: 2007Q1

REPORT INFORMATION
  Report Type: 
  Country: None (occurrence: None)
  Receive Date: 20070110
  Receipt Date: 20061211
  Transmission Date: 20070707
  Serious: Yes (Other)
  Sender: FDA-Public Use
  Company Number: 8010878

PATIENT
  Age: 25 Year
  Sex: Female

DRUGS (3)
  1. KEPPRA [Suspect]
     Indication: EPILEPSY
     Dates: start: 20050101
  2. KEPPRA [Suspect]
     Indication: EPILEPSY
     Dosage: 1250 MG 2/D;
  3. ORFIRIL /00228501/ [Suspect]
     Indication: EPILEPSY
     Dosage: 300 MG 2/D;
     Dates: start: 20040901, end: 20050101

REACTIONS (2)
  - DRUG EXPOSURE DURING PREGNANCY [None]
  - INTRA-UTERINE DEATH [None]
